FAERS Safety Report 7412709-6 (Version None)
Quarter: 2011Q2

REPORT INFORMATION
  Report Type: 
  Country: None (occurrence: None)
  Receive Date: 20110413
  Receipt Date: 20110407
  Transmission Date: 20111010
  Serious: Yes (Hospitalization)
  Sender: FDA-Public Use
  Company Number: A0849288A

PATIENT
  Sex: Male
  Weight: 129.5 kg

DRUGS (9)
  1. CAPOTEN [Concomitant]
  2. INSULIN [Concomitant]
  3. AVANDIA [Suspect]
     Indication: DIABETES MELLITUS
     Dosage: 4MG TWICE PER DAY
     Route: 048
  4. LASIX [Concomitant]
  5. INDOCIN [Concomitant]
  6. VASOTEC [Concomitant]
  7. K-DUR [Concomitant]
  8. ZAROXOLYN [Concomitant]
  9. MINOXIDIL [Concomitant]

REACTIONS (2)
  - CARDIAC FAILURE CONGESTIVE [None]
  - CONGESTIVE CARDIOMYOPATHY [None]
